FAERS Safety Report 5060172-5 (Version None)
Quarter: 2006Q3

REPORT INFORMATION
  Report Type: 
  Country: None (occurrence: None)
  Receive Date: 20060719
  Receipt Date: 20060707
  Transmission Date: 20061208
  Serious: Yes (Death)
  Sender: FDA-Public Use
  Company Number: A-CH2006-12570

PATIENT
  Age: 64 Year
  Sex: Female

DRUGS (6)
  1. TRACLEER [Suspect]
     Indication: PULMONARY HYPERTENSION
     Dosage: SEE IMAGE
     Route: 048
     Dates: start: 20040701, end: 20040801
  2. TRACLEER [Suspect]
     Indication: PULMONARY HYPERTENSION
     Dosage: SEE IMAGE
     Route: 048
     Dates: start: 20040801, end: 20060610
  3. SILDENAFIL CITRATE [Concomitant]
  4. COUMARIN (COUMARIN) [Concomitant]
  5. PRAVASTATIN [Concomitant]
  6. FUROSEMIDE [Concomitant]

REACTIONS (1)
  - SUDDEN DEATH [None]
